FAERS Safety Report 21738852 (Version 6)
Quarter: 2025Q3

REPORT INFORMATION
  Report Type: Spontaneous
  Country: US (occurrence: US)
  Receive Date: 20221216
  Receipt Date: 20250929
  Transmission Date: 20251021
  Serious: Yes (Other)
  Sender: CIPLA
  Company Number: US-CIPLA LTD.-2022US07155

PATIENT

DRUGS (11)
  1. ZIDOVUDINE [Suspect]
     Active Substance: ZIDOVUDINE
     Indication: HIV infection
     Route: 048
  2. LAMIVUDINE [Suspect]
     Active Substance: LAMIVUDINE
     Indication: HIV infection
     Route: 048
  3. ABACAVIR [Suspect]
     Active Substance: ABACAVIR
     Indication: HIV infection
     Route: 048
  4. ATAZANAVIR [Suspect]
     Active Substance: ATAZANAVIR
     Indication: HIV infection
     Route: 048
  5. RITONAVIR [Suspect]
     Active Substance: RITONAVIR
     Indication: HIV infection
     Route: 048
  6. EFAVIRENZ [Suspect]
     Active Substance: EFAVIRENZ
     Indication: HIV infection
     Route: 048
  7. DARUNAVIR [Suspect]
     Active Substance: DARUNAVIR
     Indication: HIV infection
     Route: 048
  8. EMTRICITABINE\TENOFOVIR DISOPROXIL FUMARATE [Suspect]
     Active Substance: EMTRICITABINE\TENOFOVIR DISOPROXIL FUMARATE
     Indication: HIV infection
     Route: 048
  9. NELFINAVIR [Suspect]
     Active Substance: NELFINAVIR
     Indication: HIV infection
     Route: 048
  10. STAVUDINE [Suspect]
     Active Substance: STAVUDINE
     Indication: HIV infection
     Route: 048
  11. BICTEGRAVIR\EMTRICITABINE\TENOFOVIR ALAFENAMIDE [Suspect]
     Active Substance: BICTEGRAVIR\EMTRICITABINE\TENOFOVIR ALAFENAMIDE
     Indication: HIV infection
     Route: 048

REACTIONS (15)
  - Virologic failure [Unknown]
  - Drug resistance [Unknown]
  - Immunosuppression [Unknown]
  - Pneumonia [Unknown]
  - Pyelonephritis [Unknown]
  - Treatment noncompliance [Unknown]
  - Oral candidiasis [Unknown]
  - Mucocutaneous candidiasis [Unknown]
  - Onychomycosis [Unknown]
  - Infection [Unknown]
  - Varicella [Unknown]
  - Adverse drug reaction [Unknown]
  - Aversion [Unknown]
  - Somnolence [Unknown]
  - Nausea [Unknown]
